FAERS Safety Report 11091462 (Version 2)
Quarter: 2015Q3

REPORT INFORMATION
  Report Type: Spontaneous
  Country: US (occurrence: US)
  Receive Date: 20150505
  Receipt Date: 20150914
  Transmission Date: 20151125
  Serious: Yes (Hospitalization, Other)
  Sender: FDA-Public Use
  Company Number: US-GLAXOSMITHKLINE-US2015057717

PATIENT
  Age: 63 Year
  Sex: Female

DRUGS (11)
  1. RYTHMOL SR [Suspect]
     Active Substance: PROPAFENONE HYDROCHLORIDE
     Dosage: 225 MG, U
     Route: 048
  2. RESTORIL [Concomitant]
     Active Substance: TEMAZEPAM
  3. CARVEDILOL. [Concomitant]
     Active Substance: CARVEDILOL
  4. GLIMEPIRIDE. [Concomitant]
     Active Substance: GLIMEPIRIDE
  5. METOPROLOL [Concomitant]
     Active Substance: METOPROLOL
  6. RYTHMOL SR [Suspect]
     Active Substance: PROPAFENONE HYDROCHLORIDE
     Indication: ATRIAL FIBRILLATION
     Dosage: 325 MG, BID
     Route: 048
     Dates: start: 2006
  7. WARFARIN [Concomitant]
     Active Substance: WARFARIN
  8. NIFEDIPINE. [Concomitant]
     Active Substance: NIFEDIPINE
  9. METFORMIN [Concomitant]
     Active Substance: METFORMIN HYDROCHLORIDE
  10. FUROSEMIDE. [Concomitant]
     Active Substance: FUROSEMIDE
  11. AVANDIA [Suspect]
     Active Substance: ROSIGLITAZONE MALEATE
     Dosage: UNK
     Route: 048

REACTIONS (11)
  - Cardiac disorder [Recovering/Resolving]
  - Diabetes mellitus inadequate control [Recovered/Resolved]
  - Musculoskeletal pain [Unknown]
  - Mobility decreased [Unknown]
  - Dehydration [Recovered/Resolved]
  - Urinary tract infection [Recovered/Resolved]
  - Expired product administered [Unknown]
  - Aneurysm [Recovered/Resolved]
  - Hypertension [Recovered/Resolved]
  - Shoulder arthroplasty [Unknown]
  - Malaise [Unknown]

NARRATIVE: CASE EVENT DATE: 2002
